FAERS Safety Report 21247261 (Version 1)
Quarter: 2022Q3

REPORT INFORMATION
  Report Type: Spontaneous
  Country: US (occurrence: None)
  Receive Date: 20220822
  Receipt Date: 20220822
  Transmission Date: 20221027
  Serious: No
  Sender: FDA-Public Use
  Company Number: None

PATIENT
  Age: 14 Year
  Sex: Female
  Weight: 63.5 kg

DRUGS (1)
  1. TALTZ [Suspect]
     Active Substance: IXEKIZUMAB
     Indication: Psoriasis
     Dosage: OTHER FREQUENCY : WK 12 THEN Q4WKS;?
     Route: 058
     Dates: start: 202207

REACTIONS (4)
  - Drug hypersensitivity [None]
  - Reaction to colouring [None]
  - Eye swelling [None]
  - Swelling [None]
